FAERS Safety Report 4733049-X (Version None)
Quarter: 2005Q3

REPORT INFORMATION
  Report Type: 
  Country: None (occurrence: None)
  Receive Date: 20050801
  Receipt Date: 20050714
  Transmission Date: 20060218
  Serious: Yes (Hospitalization)
  Sender: FDA-Public Use
  Company Number: 216474

PATIENT
  Age: 77 Year
  Sex: Female
  Weight: 81.5 kg

DRUGS (18)
  1. HERCEPTIN [Suspect]
     Indication: BREAST CANCER
     Dosage: 486 MG, INTRAVENOUS
     Route: 042
     Dates: start: 20050407
  2. DOCETAXEL (DOCETAXEL) [Suspect]
     Indication: BREAST CANCER
     Dosage: 109 MG, INTRAVENOUS
     Route: 042
     Dates: start: 20050408
  3. ACCURETIC (QUINAPRIL HYDROCHLORIDE, HYDROCHLOROTHIAZIDE) [Concomitant]
  4. LASIX [Concomitant]
  5. ELTROXIN (LEVOTHYROXINE SODIUM) [Concomitant]
  6. VERAPAMIL [Concomitant]
  7. REACTINE (CETIRIZINE HYDROCHLORIDE) [Concomitant]
  8. CALCIUM (VITAMIN D (CALCIUM NOS, CHOLECALCIFEROL) [Concomitant]
  9. ATIVAN [Concomitant]
  10. MOUTHWASH ASH NOS (MOUTHWASH NOS) [Concomitant]
  11. ANUSOL PLUS (ZINC SULFATE, PRAMOXINE HYDROCHLORIDE) [Concomitant]
  12. DOCUSATE SODIUM (DOCUSATE SODIUM) [Concomitant]
  13. SENOKOT [Concomitant]
  14. DULCOLAX [Concomitant]
  15. DEXAMETHASONE [Concomitant]
  16. GABAPENTIN (GAPENTIN) [Concomitant]
  17. EPREX [Concomitant]
  18. ACCUPRIL [Concomitant]

REACTIONS (13)
  - AGEUSIA [None]
  - BLOOD PRESSURE DECREASED [None]
  - BREAST INDURATION [None]
  - CHILLS [None]
  - COUGH [None]
  - CREPITATIONS [None]
  - DEHYDRATION [None]
  - FATIGUE [None]
  - HYPERHIDROSIS [None]
  - HYPOAESTHESIA ORAL [None]
  - NEUTROPENIA [None]
  - PYREXIA [None]
  - RENAL FAILURE ACUTE [None]
